FAERS Safety Report 7297928-4 (Version None)
Quarter: 2011Q1

REPORT INFORMATION
  Report Type: 
  Country: None (occurrence: None)
  Receive Date: 20110207
  Receipt Date: 20110131
  Transmission Date: 20110831
  Serious: Yes (Death)
  Sender: FDA-Public Use
  Company Number: 2011022629

PATIENT
  Sex: Male

DRUGS (1)
  1. FRAGMIN [Suspect]
     Dosage: SUBCUTANEOUS
     Route: 058

REACTIONS (2)
  - DEEP VEIN THROMBOSIS [None]
  - PULMONARY EMBOLISM [None]
